FAERS Safety Report 9844090 (Version 1)
Quarter: 2014Q1

REPORT INFORMATION
  Report Type: Spontaneous
  Country: TW (occurrence: TW)
  Receive Date: 20140127
  Receipt Date: 20140127
  Transmission Date: 20141002
  Serious: Yes (Death)
  Sender: FDA-Public Use
  Company Number: TW-ROCHE-1338121

PATIENT
  Age: 45 Year
  Sex: Female
  Weight: 50 kg

DRUGS (25)
  1. GANCICLOVIR [Suspect]
     Indication: CYTOMEGALOVIRUS INFECTION
     Route: 065
  2. CEFTRIAXONE SODIUM [Concomitant]
     Indication: PNEUMONIA
     Route: 065
  3. TRANEXAMIC ACID [Concomitant]
     Dosage: 1 PC
     Route: 065
  4. TRANEXAMIC ACID [Concomitant]
     Dosage: 2 PC
     Route: 065
  5. OMEPRAZOLE [Concomitant]
     Indication: DUODENAL ULCER HAEMORRHAGE
     Route: 065
  6. OMEPRAZOLE [Concomitant]
     Route: 065
  7. DOBUTAMINE [Concomitant]
     Dosage: 4 PC IN D5W 500 ML., 20 ML/H
     Route: 065
  8. FUROSEMIDE [Concomitant]
     Route: 065
  9. FUROSEMIDE [Concomitant]
     Route: 065
  10. ISOSORBIDE DINITRATE [Concomitant]
     Route: 065
  11. PENICILLIN G SODIUM [Concomitant]
     Indication: PNEUMONIA
     Route: 065
  12. CIPROFLOXACIN [Concomitant]
     Indication: PNEUMONIA
     Route: 065
  13. AUGMENTIN [Concomitant]
     Route: 065
  14. METHYLPREDNISOLONE [Concomitant]
     Indication: SYSTEMIC LUPUS ERYTHEMATOSUS
     Route: 065
  15. METHYLPREDNISOLONE [Concomitant]
     Route: 065
  16. METHYLPREDNISOLONE [Concomitant]
     Route: 065
  17. TEICOPLANIN [Concomitant]
     Route: 065
  18. TEICOPLANIN [Concomitant]
     Route: 065
  19. TEICOPLANIN [Concomitant]
     Route: 065
  20. BUMETANIDE [Concomitant]
     Route: 065
  21. DOPAMINE [Concomitant]
     Dosage: 4 PC IN D5W 500 ML
     Route: 065
  22. CEFTAZIDIME [Concomitant]
     Dosage: 1 PC
     Route: 065
  23. CEFTAZIDIME [Concomitant]
     Dosage: 4 PC
     Route: 065
  24. NORADRENALINE [Concomitant]
     Indication: GENERALISED OEDEMA
     Dosage: 2 PC IN D5W 250 ML 10 ML/H
     Route: 065
  25. NORADRENALINE [Concomitant]
     Dosage: 4 PC IN D5W 500 ML 20 ML/H
     Route: 065

REACTIONS (1)
  - Pancytopenia [Fatal]
